FAERS Safety Report 9337611 (Version 1)
Quarter: 2013Q2

REPORT INFORMATION
  Report Type: Report from Study
  Country: IT (occurrence: IT)
  Receive Date: 20130607
  Receipt Date: 20130607
  Transmission Date: 20140414
  Serious: Yes (Hospitalization)
  Sender: FDA-Public Use
  Company Number: IT-SHIRE-SPV1-2009-00788

PATIENT
  Age: 21 Year
  Sex: Male
  Weight: 38 kg

DRUGS (2)
  1. IDURSULFASE [Suspect]
     Indication: MUCOPOLYSACCHARIDOSIS II
     Dosage: 19 MG, 1X/WEEK
     Route: 041
     Dates: start: 20040211
  2. BECLOMETASONE [Concomitant]
     Indication: RESPIRATORY DISORDER
     Dosage: UNK UNK (2 VIALS), AS REQ^D
     Route: 055
     Dates: start: 20081009

REACTIONS (1)
  - Renal colic [Unknown]
